FAERS Safety Report 10234882 (Version 1)
Quarter: 2014Q2

REPORT INFORMATION
  Report Type: Report from Study
  Country: CN (occurrence: CN)
  Receive Date: 20140613
  Receipt Date: 20140613
  Transmission Date: 20141212
  Serious: Yes (Other)
  Sender: FDA-Public Use
  Company Number: CN-ROCHE-1414082

PATIENT
  Sex: 0

DRUGS (1)
  1. CEFTRIAXONE [Suspect]
     Indication: PRODUCT USED FOR UNKNOWN INDICATION
     Route: 065

REACTIONS (35)
  - Anaphylactic shock [Unknown]
  - Renal impairment [Unknown]
  - Rash [Unknown]
  - Pruritus [Unknown]
  - Herpes virus infection [Unknown]
  - Oedema [Unknown]
  - Pain in extremity [Unknown]
  - Phlebitis [Unknown]
  - Chest discomfort [Unknown]
  - Palpitations [Unknown]
  - Blood pressure decreased [Unknown]
  - Arrhythmia [Unknown]
  - Nausea [Unknown]
  - Vomiting [Unknown]
  - Diarrhoea [Unknown]
  - Abdominal pain [Unknown]
  - Decreased appetite [Unknown]
  - Dry mouth [Unknown]
  - Haematochezia [Unknown]
  - Dyspnoea [Unknown]
  - Asthma [Unknown]
  - Cough [Unknown]
  - Dizziness [Unknown]
  - Headache [Unknown]
  - Fatigue [Unknown]
  - Dysphoria [Unknown]
  - Amnesia [Unknown]
  - Chills [Unknown]
  - Pyrexia [Unknown]
  - Pollakiuria [Unknown]
  - Micturition urgency [Unknown]
  - Haematuria [Unknown]
  - Proteinuria [Unknown]
  - White blood cell count decreased [Unknown]
  - Haemorrhage [Unknown]
